FAERS Safety Report 6076523-9 (Version None)
Quarter: 2009Q1

REPORT INFORMATION
  Report Type: 
  Country: None (occurrence: None)
  Receive Date: 20090209
  Receipt Date: 20090130
  Transmission Date: 20090719
  Serious: Yes (Other)
  Sender: FDA-Public Use
  Company Number: GXKR2009JP01340

PATIENT
  Sex: Female

DRUGS (5)
  1. VINCRISTINE [Suspect]
     Indication: DIFFUSE LARGE B-CELL LYMPHOMA
     Dosage: 8 CYCLES
  2. PREDNISOLONE [Suspect]
     Indication: DIFFUSE LARGE B-CELL LYMPHOMA
     Dosage: 8 CYCLES
  3. PIRARUBICIN (PIRARUBICIN) [Suspect]
     Indication: DIFFUSE LARGE B-CELL LYMPHOMA
     Dosage: 284 MG/M2, 2 CYCLES,
  4. CYCLOPHOSPHAMIDE [Suspect]
     Indication: DIFFUSE LARGE B-CELL LYMPHOMA
     Dosage: 4219 MG/M2, 8 CYCLES
  5. RITUXIMAB (RITUXIMAB) [Suspect]
     Indication: DIFFUSE LARGE B-CELL LYMPHOMA
     Dosage: 2 CYCLES,

REACTIONS (1)
  - ACUTE MYELOID LEUKAEMIA [None]
